FAERS Safety Report 9880245 (Version 1)
Quarter: 2014Q1

REPORT INFORMATION
  Report Type: Spontaneous
  Country: US (occurrence: US)
  Receive Date: 20140207
  Receipt Date: 20140207
  Transmission Date: 20141002
  Serious: No
  Sender: FDA-Public Use
  Company Number: US-BIOGENIDEC-2014BI009602

PATIENT
  Age: 77 Year
  Sex: Female

DRUGS (7)
  1. TECFIDERA [Suspect]
     Indication: MULTIPLE SCLEROSIS
     Route: 048
     Dates: start: 20140116
  2. DETROL LA [Concomitant]
  3. ESTRACE [Concomitant]
  4. HYDROCHLOROTHIAZIDE [Concomitant]
  5. POTASSIUM CHLORIDE CR [Concomitant]
  6. VITAMIN B12 [Concomitant]
  7. VITAMIN D [Concomitant]

REACTIONS (1)
  - Influenza [Unknown]
